FAERS Safety Report 7470638-6 (Version None)
Quarter: 2011Q2

REPORT INFORMATION
  Report Type: 
  Country: None (occurrence: None)
  Receive Date: 20110510
  Receipt Date: 20110502
  Transmission Date: 20111010
  Serious: No
  Sender: FDA-Public Use
  Company Number: US-CEPHALON-2011002183

PATIENT
  Sex: Male

DRUGS (1)
  1. FENTORA [Suspect]
     Route: 002

REACTIONS (2)
  - DRUG ADMINISTRATION ERROR [None]
  - ABDOMINAL DISCOMFORT [None]
